FAERS Safety Report 24008821 (Version 3)
Quarter: 2024Q3

REPORT INFORMATION
  Report Type: Spontaneous
  Country: GB (occurrence: GB)
  Receive Date: 20240625
  Receipt Date: 20240823
  Transmission Date: 20241016
  Serious: No
  Sender: TEVA
  Company Number: GB-PFIZER INC-202400103397

PATIENT
  Age: 79 Year
  Sex: Female

DRUGS (6)
  1. PRIMIDONE [Suspect]
     Active Substance: PRIMIDONE
     Indication: Epilepsy
     Dosage: 250 MG, 2X/DAY,
     Route: 065
  2. IRBESARTAN [Suspect]
     Active Substance: IRBESARTAN
     Indication: Blood pressure management
     Dosage: UNK
     Route: 065
  3. HYLO TEAR [Concomitant]
     Indication: Maculopathy
     Route: 047
  4. BECONASE AQ [Concomitant]
     Active Substance: BECLOMETHASONE DIPROPIONATE MONOHYDRATE
     Dosage: UNK
     Route: 045
  5. LANSOPRAZOLE [Suspect]
     Active Substance: LANSOPRAZOLE
     Indication: Hiatus hernia
     Dosage: UNK, FASTAB
     Route: 065
  6. COMIRNATY (TOZINAMERAN) [Suspect]
     Active Substance: TOZINAMERAN
     Indication: COVID-19 immunisation
     Dosage: DOSE NUMBER UNKNOWN, SINGLE, COMIRNATY NOS
     Route: 065

REACTIONS (3)
  - Sleep apnoea syndrome [Unknown]
  - Fatigue [Unknown]
  - Somnolence [Unknown]
